FAERS Safety Report 24692655 (Version 1)
Quarter: 2024Q4

REPORT INFORMATION
  Report Type: Spontaneous
  Country: GB (occurrence: GB)
  Receive Date: 20241203
  Receipt Date: 20241203
  Transmission Date: 20250114
  Serious: Yes (Life-Threatening, Other)
  Sender: ORGANON
  Company Number: None

PATIENT
  Age: 60 Year
  Sex: Male
  Weight: 112 kg

DRUGS (4)
  1. MIRTAZAPINE [Suspect]
     Active Substance: MIRTAZAPINE
     Dosage: 30 MILLIGRAM, AT NIGHT (NOCTE)
     Route: 065
  2. GABAPENTIN [Suspect]
     Active Substance: GABAPENTIN
     Dosage: 900 MILLIGRAM, THREE TIMES DAILY (TDS)
     Route: 065
     Dates: start: 2016
  3. TRAMADOL [Suspect]
     Active Substance: TRAMADOL
     Dosage: 300 MG - 400 MG PER DAY
     Route: 065
  4. AMITRIPTYLINE [Suspect]
     Active Substance: AMITRIPTYLINE
     Dosage: 30 MILLIGRAM, AT NIGHT (NOCTE)
     Route: 065

REACTIONS (1)
  - Respiratory depression [Not Recovered/Not Resolved]
